FAERS Safety Report 6833388-2 (Version None)
Quarter: 2010Q3

REPORT INFORMATION
  Report Type: 
  Country: None (occurrence: None)
  Receive Date: 20100712
  Receipt Date: 20070320
  Transmission Date: 20110219
  Serious: No
  Sender: FDA-Public Use
  Company Number: US-PFIZER INC-2007022676

PATIENT
  Sex: Female
  Weight: 74.84 kg

DRUGS (5)
  1. CHANTIX [Suspect]
     Dates: start: 20070301, end: 20070319
  2. PLAVIX [Concomitant]
  3. ALTACE [Concomitant]
  4. COREG [Concomitant]
  5. LIPITOR [Concomitant]

REACTIONS (3)
  - CONSTIPATION [None]
  - FLATULENCE [None]
  - NAUSEA [None]
